FAERS Safety Report 8816519 (Version 1)
Quarter: 2012Q4

REPORT INFORMATION
  Report Type: Spontaneous
  Country: US (occurrence: None)
  Receive Date: 20120927
  Receipt Date: 20120927
  Transmission Date: 20130627
  Serious: Yes (Death, Hospitalization, Other)
  Sender: FDA-Public Use
  Company Number: DSA_59804_2012

PATIENT
  Age: 46 Year
  Sex: Female

DRUGS (10)
  1. FLUOROURACIL [Suspect]
     Indication: COLON CANCER STAGE III
     Dosage: DF; Every cycle
  2. FLUOROURACIL [Suspect]
     Indication: COLON CANCER METASTATIC
     Dosage: DF; Every cycle
  3. OXALIPLATIN [Suspect]
     Indication: COLON CANCER STAGE III
     Dosage: DF; Every cycle
  4. LEUCOVORIN [Suspect]
     Indication: COLON CANCER STAGE III
     Dosage: DF; Every cycle
  5. LEUCOVORIN [Suspect]
     Indication: COLON CANCER METASTATIC
     Dosage: DF; Every cycle
  6. BEVACIZUMAB [Suspect]
     Indication: COLON CANCER STAGE III
     Dosage: DF; Every cycle
  7. THERAPEUTIC RADIOPHARMACEUTICALS [Suspect]
     Indication: COLON CANCER STAGE III
     Dosage: DF; Every cycle
  8. GRANULOCYTE COLONY STIMULATING FACTOR [Suspect]
     Indication: COLON CANCER METASTATIC
     Dosage: DF; Every cycle
  9. GEMCITABINE [Suspect]
     Indication: COLON CANCER METASTATIC
     Dosage: DF; Every cycle
  10. ALDESLEUKIN [Suspect]
     Indication: COLON CANCER METASTATIC
     Dosage: DF; Every cycle

REACTIONS (4)
  - Clostridium difficile colitis [None]
  - Sepsis [None]
  - Deep vein thrombosis [None]
  - Neutropenia [None]
